FAERS Safety Report 8263323 (Version 2)
Quarter: 2012Q4

REPORT INFORMATION
  Report Type: Report from Study
  Country: IE (occurrence: IE)
  Receive Date: 20111125
  Receipt Date: 20121101
  Transmission Date: 20130627
  Serious: Yes (Hospitalization, Other)
  Sender: FDA-Public Use
  Company Number: IE-SANOFI-AVENTIS-2011SA076432

PATIENT
  Age: 41 Year
  Sex: Female
  Weight: 70.8 kg

DRUGS (12)
  1. DOCETAXEL [Suspect]
     Indication: HER-2 POSITIVE BREAST CANCER
     Dosage: Form: vial
Dose level:75 mg/m2:
     Route: 042
     Dates: start: 20100803
  2. DOCETAXEL [Suspect]
     Indication: HER-2 POSITIVE BREAST CANCER
     Dosage: Form: vial
Dose level:60 mg/m2
     Route: 042
     Dates: start: 20100826
  3. TRASTUZUMAB [Suspect]
     Indication: HER-2 POSITIVE BREAST CANCER
     Dosage: Form: vial
Frequency: 1 in 1 total
     Route: 042
  4. TRASTUZUMAB [Suspect]
     Indication: HER-2 POSITIVE BREAST CANCER
     Dosage: Form: vial
Dose level:6 mg/kg
     Route: 042
     Dates: start: 20100803
  5. TRASTUZUMAB [Suspect]
     Indication: HER-2 POSITIVE BREAST CANCER
     Dosage: Form: vial
Dose level:6 mg/kg
     Route: 042
     Dates: start: 20100826
  6. CARBOPLATIN [Suspect]
     Indication: HER-2 POSITIVE BREAST CANCER
     Dosage: Form: vial
Dose level:6 AUC
     Route: 042
     Dates: start: 20100803
  7. CARBOPLATIN [Suspect]
     Indication: HER-2 POSITIVE BREAST CANCER
     Dosage: Form: vial
Dose level:5 AUC
     Route: 042
     Dates: start: 20100826
  8. CYCLIZINE [Concomitant]
     Dates: start: 20100812
  9. ZOTON [Concomitant]
     Dosage: therapy start date 12 aug 2010,
100 microgram daily( mon to friday)
150 microgram daily
  10. ZOTON [Concomitant]
     Dosage: start date 13 aug 2010
  11. LEVOTHYROXINE SODIUM [Concomitant]
     Dosage: 100 microgram daily( mon to friday)
150 microgram daily(Sat and sun)
     Dates: start: 20100813
  12. MOVICOL [Concomitant]
     Dosage: dose: 1 Sachet

REACTIONS (7)
  - Cold sweat [Recovered/Resolved]
  - Neutropenia [Recovered/Resolved]
  - Back pain [Recovered/Resolved]
  - Myalgia [Recovered/Resolved]
  - Chills [Recovered/Resolved]
  - Lethargy [Recovered/Resolved]
  - Decreased appetite [Recovered/Resolved]
